FAERS Safety Report 18440894 (Version 3)
Quarter: 2021Q1

REPORT INFORMATION
  Report Type: Spontaneous
  Country: US (occurrence: US)
  Receive Date: 20201029
  Receipt Date: 20210331
  Transmission Date: 20210419
  Serious: No
  Sender: FDA-Public Use
  Company Number: US-PFIZER INC-2020416545

PATIENT
  Age: 67 Year
  Sex: Female

DRUGS (1)
  1. XELJANZ XR [Suspect]
     Active Substance: TOFACITINIB CITRATE
     Indication: RHEUMATOID ARTHRITIS
     Dosage: 11 MG, DAILY
     Route: 048
     Dates: start: 202008

REACTIONS (14)
  - Myalgia [Unknown]
  - C-reactive protein increased [Unknown]
  - COVID-19 [Unknown]
  - Fatigue [Unknown]
  - Drug ineffective [Unknown]
  - Movement disorder [Unknown]
  - Parosmia [Unknown]
  - Immune system disorder [Unknown]
  - Arthralgia [Unknown]
  - Nasal congestion [Unknown]
  - Nausea [Unknown]
  - Red blood cell sedimentation rate increased [Unknown]
  - Pyrexia [Unknown]
  - Dysgeusia [Unknown]
